FAERS Safety Report 17688022 (Version 1)
Quarter: 2020Q2

REPORT INFORMATION
  Report Type: Spontaneous
  Country: US (occurrence: US)
  Receive Date: 20200421
  Receipt Date: 20200421
  Transmission Date: 20200714
  Serious: No
  Sender: FDA-Public Use
  Company Number: US-AMGEN-USASP2020063066

PATIENT
  Age: 81 Year
  Sex: Male

DRUGS (7)
  1. WARFARIN [Concomitant]
     Active Substance: WARFARIN
     Dosage: 2.5 UNK
     Dates: start: 20200413
  2. WARFARIN [Concomitant]
     Active Substance: WARFARIN
     Dosage: 2.6 UNK
     Dates: start: 20200323
  3. WARFARIN [Concomitant]
     Active Substance: WARFARIN
     Dosage: 2.2 UNK
     Dates: start: 20200330
  4. WARFARIN [Concomitant]
     Active Substance: WARFARIN
     Dosage: 1.8 UNK
     Dates: start: 20200309
  5. WARFARIN [Concomitant]
     Active Substance: WARFARIN
     Dosage: 2.2 UNK
     Dates: start: 20200316
  6. WARFARIN [Concomitant]
     Active Substance: WARFARIN
     Dosage: 2.3 UNK
     Dates: start: 20200406
  7. REPATHA [Suspect]
     Active Substance: EVOLOCUMAB
     Indication: BLOOD CHOLESTEROL INCREASED
     Dosage: 140 MILLIGRAM, Q2WK
     Route: 065

REACTIONS (3)
  - Injection site bruising [Recovering/Resolving]
  - Injection site swelling [Recovering/Resolving]
  - Injection site pain [Recovering/Resolving]

NARRATIVE: CASE EVENT DATE: 20200401
